FAERS Safety Report 8106111 (Version 6)
Quarter: 2013Q3

REPORT INFORMATION
  Report Type: Spontaneous
  Country: US (occurrence: US)
  Receive Date: 20110825
  Receipt Date: 20130727
  Transmission Date: 20140515
  Serious: Yes (Other)
  Sender: FDA-Public Use
  Company Number: US-ROCHE-772760

PATIENT
  Age: 16 Year
  Sex: Male
  Weight: 73 kg

DRUGS (3)
  1. ACCUTANE [Suspect]
     Indication: ACNE
     Route: 065
     Dates: start: 199911, end: 200006
  2. ACCUTANE [Suspect]
     Route: 065
     Dates: start: 200010, end: 200112
  3. DYNACIN [Concomitant]

REACTIONS (12)
  - Colitis ulcerative [Unknown]
  - Inflammatory bowel disease [Unknown]
  - Emotional distress [Unknown]
  - Anal fissure [Unknown]
  - Large intestine polyp [Unknown]
  - Depression [Unknown]
  - Irritable bowel syndrome [Unknown]
  - Fracture [Unknown]
  - Epistaxis [Unknown]
  - Dry skin [Unknown]
  - Lip dry [Unknown]
  - Muscle strain [Unknown]
